FAERS Safety Report 5648956-3 (Version None)
Quarter: 2008Q1

REPORT INFORMATION
  Report Type: 
  Country: None (occurrence: None)
  Receive Date: 20080304
  Receipt Date: 20080226
  Transmission Date: 20080703
  Serious: Yes (Hospitalization)
  Sender: FDA-Public Use
  Company Number: JP-ASTRAZENECA-2008AP01125

PATIENT
  Age: 78 Year
  Sex: Female
  Weight: 45 kg

DRUGS (5)
  1. IRESSA [Suspect]
     Indication: LUNG NEOPLASM MALIGNANT
     Route: 048
     Dates: start: 20080104, end: 20080115
  2. IRESSA [Suspect]
     Route: 048
     Dates: start: 20080125, end: 20080101
  3. MYTELASE [Concomitant]
     Dosage: UNKNOWN DOSE
     Route: 048
  4. MESTINON [Concomitant]
     Dosage: UNKNOWN DOSE
     Route: 048
  5. VITANEURIN [Concomitant]
     Dosage: UNKNOWN DOSE
     Route: 065

REACTIONS (2)
  - DYSPHAGIA [None]
  - DYSPNOEA [None]
